FAERS Safety Report 10015604 (Version 2)
Quarter: 2014Q3

REPORT INFORMATION
  Report Type: Spontaneous
  Country: US (occurrence: US)
  Receive Date: 20140317
  Receipt Date: 20140812
  Transmission Date: 20150326
  Serious: Yes (Other)
  Sender: FDA-Public Use
  Company Number: US-BAYER-2014-036858

PATIENT
  Age: 37 Year
  Sex: Female
  Weight: 117.91 kg

DRUGS (1)
  1. MIRENA [Suspect]
     Active Substance: LEVONORGESTREL
     Indication: CONTRACEPTION
     Dosage: 20 MCG/24HR, CONT
     Route: 015
     Dates: start: 2007

REACTIONS (17)
  - Pelvic pain [None]
  - Back pain [None]
  - Fatigue [None]
  - Abdominal pain [None]
  - Device issue [None]
  - Nausea [None]
  - Emotional distress [None]
  - Pain [None]
  - Anxiety [None]
  - Uterine perforation [None]
  - Anhedonia [None]
  - Injury [None]
  - Menorrhagia [None]
  - General physical health deterioration [None]
  - Abdominal pain lower [None]
  - Dysuria [None]
  - Headache [None]

NARRATIVE: CASE EVENT DATE: 201101
